FAERS Safety Report 23273373 (Version 1)
Quarter: 2023Q4

REPORT INFORMATION
  Report Type: Spontaneous
  Country: CN (occurrence: CN)
  Receive Date: 20231207
  Receipt Date: 20231207
  Transmission Date: 20240110
  Serious: Yes (Other)
  Sender: FDA-Public Use
  Company Number: CN-ABBVIE-5510282

PATIENT
  Age: 74 Year
  Sex: Female
  Weight: 75 kg

DRUGS (2)
  1. VENETOCLAX [Suspect]
     Active Substance: VENETOCLAX
     Indication: Neoplasm
     Route: 048
     Dates: start: 20231017, end: 20231026
  2. AZACITIDINE [Concomitant]
     Active Substance: AZACITIDINE
     Indication: Neoplasm
     Dosage: 100 MILLIGRAM
     Route: 065
     Dates: start: 20231013, end: 20231019

REACTIONS (2)
  - Platelet count decreased [Recovering/Resolving]
  - Neoplasm progression [Unknown]

NARRATIVE: CASE EVENT DATE: 20231026
